FAERS Safety Report 6603259-5 (Version None)
Quarter: 2010Q1

REPORT INFORMATION
  Report Type: 
  Country: None (occurrence: None)
  Receive Date: 20100226
  Receipt Date: 20100215
  Transmission Date: 20100710
  Serious: Yes (Death)
  Sender: FDA-Public Use
  Company Number: US-JNJFOC-20100209390

PATIENT
  Age: 71 Year
  Sex: Female
  Weight: 47.85 kg

DRUGS (7)
  1. DURAGESIC-100 [Suspect]
     Indication: DRUG USE FOR UNKNOWN INDICATION
     Dosage: TWO 100.0 UG/HR PATCHES
     Route: 062
  2. DIPHENHYDRAMINE [Concomitant]
     Route: 065
  3. CITALOPRAM [Concomitant]
     Route: 065
  4. DIHYDROCODEINE BITARTRATE INJ [Concomitant]
     Route: 065
  5. HYDROCODONE [Concomitant]
     Route: 065
  6. ACETAMINOPHEN [Concomitant]
     Route: 065
  7. HYDROMORPHONE HYDROCHLORIDE [Concomitant]
     Route: 065

REACTIONS (2)
  - DRUG ADMINISTERED AT INAPPROPRIATE SITE [None]
  - OVERDOSE [None]
